FAERS Safety Report 10704095 (Version 1)
Quarter: 2015Q1

REPORT INFORMATION
  Report Type: Spontaneous
  Country: US (occurrence: None)
  Receive Date: 20150109
  Receipt Date: 20150109
  Transmission Date: 20150721
  Serious: Yes (Other)
  Sender: FDA-Public Use
  Company Number: None

PATIENT
  Age: 45 Year
  Sex: Female
  Weight: 80.4 kg

DRUGS (1)
  1. MAXIPIME [Suspect]
     Active Substance: CEFEPIME HYDROCHLORIDE
     Indication: GRAFT INFECTION
     Route: 042
     Dates: start: 20141020, end: 20141029

REACTIONS (6)
  - Lethargy [None]
  - Dyskinesia [None]
  - Myoclonus [None]
  - Agitation [None]
  - Confusional state [None]
  - Hypertension [None]

NARRATIVE: CASE EVENT DATE: 20141103
